FAERS Safety Report 18724712 (Version 1)
Quarter: 2021Q1

REPORT INFORMATION
  Report Type: Spontaneous
  Country: US (occurrence: US)
  Receive Date: 20210111
  Receipt Date: 20210111
  Transmission Date: 20210419
  Serious: Yes (Other)
  Sender: FDA-Public Use
  Company Number: None

PATIENT
  Age: 57 Year
  Sex: Male
  Weight: 74.7 kg

DRUGS (2)
  1. CHLORHEXIDINE GLUCONATE 0.12% [Suspect]
     Active Substance: CHLORHEXIDINE GLUCONATE
     Indication: PROPHYLAXIS
     Route: 049
     Dates: start: 20201008, end: 20201027
  2. CHLORHEXIDINE GLUCONATE 0.12% [Suspect]
     Active Substance: CHLORHEXIDINE GLUCONATE
     Indication: PNEUMONIA
     Route: 049
     Dates: start: 20201008, end: 20201027

REACTIONS (8)
  - Sepsis [None]
  - Lung opacity [None]
  - Hypertension [None]
  - Heart rate increased [None]
  - Sputum culture positive [None]
  - Chest X-ray abnormal [None]
  - Burkholderia infection [None]
  - Respiratory rate increased [None]

NARRATIVE: CASE EVENT DATE: 20201021
